FAERS Safety Report 4410863-1 (Version None)
Quarter: 2004Q3

REPORT INFORMATION
  Report Type: 
  Country: None (occurrence: None)
  Receive Date: 20040726
  Receipt Date: 20040714
  Transmission Date: 20050211
  Serious: Yes (Other)
  Sender: FDA-Public Use
  Company Number: 2004223889US

PATIENT
  Age: 66 Year
  Sex: Female

DRUGS (6)
  1. PROVERA [Suspect]
     Indication: MENOPAUSAL SYMPTOMS
     Dates: start: 19970101
  2. PREMPRO [Suspect]
     Indication: MENOPAUSAL SYMPTOMS
     Dates: start: 19970101
  3. CYCRIN [Suspect]
     Indication: MENOPAUSAL SYMPTOMS
  4. ESTROPIPATE [Suspect]
     Indication: MENOPAUSAL SYMPTOMS
  5. MEDROXYPROGESTERONE [Suspect]
     Indication: MENOPAUSAL SYMPTOMS
  6. ESTRACE [Suspect]
     Indication: MENOPAUSAL SYMPTOMS

REACTIONS (1)
  - BREAST CANCER STAGE III [None]
